FAERS Safety Report 25946111 (Version 1)
Quarter: 2025Q4

REPORT INFORMATION
  Report Type: Report from Study
  Country: CO (occurrence: CO)
  Receive Date: 20251021
  Receipt Date: 20251021
  Transmission Date: 20260118
  Serious: Yes (Death)
  Sender: ABBVIE
  Company Number: CO-ABBVIE-6511943

PATIENT
  Age: 74 Year
  Sex: Female

DRUGS (2)
  1. BOTOX [Suspect]
     Active Substance: ONABOTULINUMTOXINA
     Indication: Torticollis
     Dosage: TIME INTERVAL: AS NECESSARY: BOTOX VIAL 200 UNIT, 100 UNITS EVERY 3 MONTHS
     Route: 030
     Dates: start: 20240612, end: 20240612
  2. BOTOX [Suspect]
     Active Substance: ONABOTULINUMTOXINA
     Indication: Torticollis
     Dosage: TIME INTERVAL: AS NECESSARY: BOTOX VIAL 200 UNIT, 100 UNITS EVERY 3 MONTHS
     Route: 030
     Dates: start: 20250604, end: 20250604

REACTIONS (1)
  - Death [Fatal]

NARRATIVE: CASE EVENT DATE: 20251016
